FAERS Safety Report 7882577 (Version 4)
Quarter: 2013Q3

REPORT INFORMATION
  Report Type: Report from Study
  Country: DE (occurrence: DE)
  Receive Date: 20110403
  Receipt Date: 20130709
  Transmission Date: 20140515
  Serious: Yes (Other)
  Sender: FDA-Public Use
  Company Number: PHHY2009DE67755

PATIENT
  Age: 57 Year
  Sex: Male

DRUGS (5)
  1. EXTAVIA [Suspect]
     Indication: MULTIPLE SCLEROSIS
     Dosage: 1 ML, QOD
     Route: 058
     Dates: start: 20090626
  2. BACLOFEN [Concomitant]
     Indication: MUSCLE SPASTICITY
     Dosage: 50 MG, DAILY
     Route: 048
  3. CARBAMAZEPINE [Concomitant]
  4. TETRAZEPAM [Concomitant]
     Indication: MUSCLE SPASTICITY
     Dosage: 50 MG, DAILY
     Route: 048
     Dates: start: 20100503
  5. TOLPERISONE [Concomitant]

REACTIONS (10)
  - Fall [Unknown]
  - Femoral neck fracture [Unknown]
  - Facial pain [Unknown]
  - Thrombosis [Unknown]
  - Injection site abscess [Not Recovered/Not Resolved]
  - Injection site erythema [Not Recovered/Not Resolved]
  - Mental disorder [Unknown]
  - Gait disturbance [Unknown]
  - Impaired self-care [Unknown]
  - Diarrhoea [Recovered/Resolved]
